FAERS Safety Report 5518330-9 (Version None)
Quarter: 2007Q4

REPORT INFORMATION
  Report Type: 
  Country: None (occurrence: None)
  Receive Date: 20071113
  Receipt Date: 20071108
  Transmission Date: 20080405
  Serious: Yes (Life-Threatening, Hospitalization)
  Sender: FDA-Public Use
  Company Number: 2007SP016557

PATIENT
  Age: 76 Year
  Sex: Female
  Weight: 47.5 kg

DRUGS (10)
  1. TEMODAL [Suspect]
     Indication: GLIOBLASTOMA MULTIFORME
     Dosage: 100 MG;QD;NGT
     Dates: start: 20070627, end: 20070804
  2. POLARAMINE [Suspect]
     Indication: DRUG ERUPTION
     Dosage: 4 MG; ;NGT
     Dates: start: 20070802, end: 20070815
  3. PHENYTOIN [Suspect]
     Indication: CONVULSION
     Dosage: 2 GM;QD;NGT
     Dates: start: 20070621, end: 20070804
  4. BACTRIM [Suspect]
     Indication: BONE MARROW FAILURE
     Dosage: 1 GM; ;NGT
     Dates: start: 20070726, end: 20070815
  5. MINOCYCLINE HCL [Suspect]
     Indication: BONE MARROW FAILURE
     Dosage: 200 MG; ;NGT
     Dates: start: 20070730, end: 20070803
  6. HALFDIGOXIN [Concomitant]
  7. MAINTATE [Concomitant]
  8. ZOFRAN [Concomitant]
  9. ASPIRIN [Concomitant]
  10. GASTER [Concomitant]

REACTIONS (8)
  - BONE MARROW FAILURE [None]
  - ELECTROLYTE IMBALANCE [None]
  - FEMALE GENITAL TRACT FISTULA [None]
  - HYPOALBUMINAEMIA [None]
  - HYPOPROTEINAEMIA [None]
  - LIVER DISORDER [None]
  - RENAL IMPAIRMENT [None]
  - STEVENS-JOHNSON SYNDROME [None]
